FAERS Safety Report 18114506 (Version 2)
Quarter: 2020Q3

REPORT INFORMATION
  Report Type: Spontaneous
  Country: US (occurrence: US)
  Receive Date: 20200805
  Receipt Date: 20200910
  Transmission Date: 20201103
  Serious: Yes (Other)
  Sender: FDA-Public Use
  Company Number: US-MALLINCKRODT-T202003911

PATIENT
  Sex: Male
  Weight: 101 kg

DRUGS (2)
  1. H.P. ACTHAR [Suspect]
     Active Substance: CORTICOTROPIN
     Indication: GLOMERULONEPHRITIS MEMBRANOUS
  2. H.P. ACTHAR [Suspect]
     Active Substance: CORTICOTROPIN
     Indication: NEPHROTIC SYNDROME
     Dosage: 40 UNITS TWICE WEEKLY
     Route: 058

REACTIONS (4)
  - Rheumatoid arthritis [Unknown]
  - Muscle spasms [Unknown]
  - Dry throat [Not Recovered/Not Resolved]
  - Hyperhidrosis [Recovered/Resolved]
